FAERS Safety Report 8144916-1 (Version None)
Quarter: 2012Q1

REPORT INFORMATION
  Report Type: 
  Country: None (occurrence: None)
  Receive Date: 20120217
  Receipt Date: 20120210
  Transmission Date: 20120608
  Serious: Yes (Hospitalization, Other)
  Sender: FDA-Public Use
  Company Number: US-MERCK-1109USA01003

PATIENT
  Age: 72 Year
  Sex: Female
  Weight: 61 kg

DRUGS (7)
  1. FOSAMAX [Suspect]
     Indication: OSTEOPOROSIS
     Route: 048
     Dates: start: 20030103, end: 20070126
  2. FOSAMAX [Suspect]
     Route: 048
     Dates: start: 19960215
  3. VITAMIN D (UNSPECIFIED) [Concomitant]
     Route: 065
     Dates: start: 20020101
  4. FOSAMAX [Suspect]
     Route: 048
     Dates: start: 19960215
  5. FOSAMAX [Suspect]
     Indication: OSTEOPENIA
     Route: 048
     Dates: start: 20030103, end: 20070126
  6. FOSAMAX PLUS D [Suspect]
     Indication: OSTEOPENIA
     Route: 048
     Dates: start: 20060101
  7. FOSAMAX PLUS D [Suspect]
     Indication: OSTEOPOROSIS
     Route: 048
     Dates: start: 20060101

REACTIONS (44)
  - ANAEMIA POSTOPERATIVE [None]
  - HYPERTENSION [None]
  - GASTROINTESTINAL NEOPLASM [None]
  - CATARACT [None]
  - LIMB INJURY [None]
  - ARTHRALGIA [None]
  - HAEMORRHOIDS [None]
  - STRESS FRACTURE [None]
  - BALANCE DISORDER [None]
  - PERICARDIAL EFFUSION [None]
  - POSTMENOPAUSAL HAEMORRHAGE [None]
  - GASTROOESOPHAGEAL REFLUX DISEASE [None]
  - CYSTITIS [None]
  - IMPAIRED FASTING GLUCOSE [None]
  - HEART RATE IRREGULAR [None]
  - FOOT FRACTURE [None]
  - ADHESION [None]
  - VITAMIN D DECREASED [None]
  - HIATUS HERNIA [None]
  - FEMUR FRACTURE [None]
  - PERICARDITIS [None]
  - BACK DISORDER [None]
  - URINARY TRACT INFECTION [None]
  - CONSTIPATION [None]
  - RECTAL FISSURE [None]
  - TENDON RUPTURE [None]
  - SCOLIOSIS [None]
  - FALL [None]
  - OSTEOARTHRITIS [None]
  - COLONIC POLYP [None]
  - LOW TURNOVER OSTEOPATHY [None]
  - GASTROINTESTINAL HAEMORRHAGE [None]
  - ATROPHIC VULVOVAGINITIS [None]
  - URINARY TRACT INFECTION PSEUDOMONAL [None]
  - DIVERTICULUM INTESTINAL [None]
  - HELICOBACTER TEST POSITIVE [None]
  - CHOLELITHIASIS [None]
  - IRON DEFICIENCY ANAEMIA [None]
  - PEPTIC ULCER HAEMORRHAGE [None]
  - TENDONITIS [None]
  - TENDON DISORDER [None]
  - COLON ADENOMA [None]
  - BLADDER SPASM [None]
  - CARDIOMEGALY [None]
